FAERS Safety Report 4627616-1 (Version None)
Quarter: 2005Q2

REPORT INFORMATION
  Report Type: 
  Country: None (occurrence: None)
  Receive Date: 20050401
  Receipt Date: 20050401
  Transmission Date: 20051028
  Serious: Yes (Other)
  Sender: FDA-Public Use
  Company Number: None

PATIENT
  Age: 52 Year
  Sex: Female
  Weight: 56 kg

DRUGS (3)
  1. CENOLATE 500MG/ML ABBOTT LABS [Suspect]
     Indication: WOUND
     Dosage: 500MG QD INTRAVENOUS
     Route: 042
     Dates: start: 20050325, end: 20050329
  2. TPN [Concomitant]
  3. FAMOTIDINE [Concomitant]

REACTIONS (1)
  - URTICARIA GENERALISED [None]
